FAERS Safety Report 9782785 (Version 2)
Quarter: 2014Q3

REPORT INFORMATION
  Report Type: Spontaneous
  Country: FR (occurrence: None)
  Receive Date: 20131220
  Receipt Date: 20140805
  Transmission Date: 20150326
  Serious: Yes (Hospitalization)
  Sender: FDA-Public Use
  Company Number: 1970092

PATIENT
  Age: 59 Year
  Sex: Male

DRUGS (13)
  1. (DURAGESIC) [Concomitant]
  2. (CARBOPLATIN) [Suspect]
     Active Substance: CARBOPLATIN
     Indication: LARYNGEAL CANCER
     Dosage: 125 MG MILLIGRAM (S), UNKNOWN , INTRAVENOUS
     Route: 042
     Dates: start: 20110726, end: 20110816
  3. CETUXIMAB [Suspect]
     Active Substance: CETUXIMAB
     Indication: LARYNGEAL CANCER
     Dosage: DEPENDS ON CYCLE, UNKNOWN , INTRAVENOUS
     Route: 042
     Dates: start: 20110719, end: 20110816
  4. (NUTRIENTS NOS) [Concomitant]
  5. FLUOROURACILE [Suspect]
     Active Substance: FLUOROURACIL
     Indication: LARYNGEAL CANCER
     Dosage: 1100 MG MILLIGRAM (S), UNKNOWN, INTRAVENOUS
     Route: 041
     Dates: start: 20110726, end: 20110818
  6. FLUOROURACILE [Suspect]
     Active Substance: FLUOROURACIL
     Indication: SQUAMOUS CELL CARCINOMA
     Dosage: 1100 MG MILLIGRAM (S), UNKNOWN, INTRAVENOUS
     Route: 041
     Dates: start: 20110726, end: 20110818
  7. ZOPHREN [Suspect]
     Active Substance: ONDANSETRON
     Indication: PRODUCT USED FOR UNKNOWN INDICATION
     Route: 042
     Dates: start: 20110726, end: 20110816
  8. CETUXIMAB [Suspect]
     Active Substance: CETUXIMAB
     Indication: SQUAMOUS CELL CARCINOMA
     Dosage: DEPENDS ON CYCLE, UNKNOWN , INTRAVENOUS
     Route: 042
     Dates: start: 20110719, end: 20110816
  9. POLARAMINE [Concomitant]
     Active Substance: DEXCHLORPHENIRAMINE MALEATE
  10. (FRESUBIN) [Concomitant]
  11. (SOLUMEDROL) [Concomitant]
  12. (RANITIDINE) [Concomitant]
  13. (CARBOPLATIN) [Suspect]
     Active Substance: CARBOPLATIN
     Indication: SQUAMOUS CELL CARCINOMA
     Dosage: 125 MG MILLIGRAM (S), UNKNOWN , INTRAVENOUS
     Route: 042
     Dates: start: 20110726, end: 20110816

REACTIONS (5)
  - Myocarditis [None]
  - Hyperhidrosis [None]
  - Malaise [None]
  - Blood pressure increased [None]
  - Ventricular tachycardia [None]

NARRATIVE: CASE EVENT DATE: 20110818
